FAERS Safety Report 4279558-1 (Version None)
Quarter: 2004Q1

REPORT INFORMATION
  Report Type: 
  Country: None (occurrence: None)
  Receive Date: 20040123
  Receipt Date: 20040113
  Transmission Date: 20041129
  Serious: Yes (Hospitalization)
  Sender: FDA-Public Use
  Company Number: 2004002145

PATIENT
  Age: 76 Year
  Sex: Male

DRUGS (5)
  1. LIPITOR [Suspect]
     Indication: HYPERLIPIDAEMIA
     Dosage: 10 MG DAILY ORAL
     Route: 048
     Dates: start: 20030512, end: 20030804
  2. VALSARTAN (VALSARTAN) [Suspect]
     Indication: HYPERTENSION
     Dosage: 80 MG DAILY ORAL
     Route: 048
     Dates: start: 20011220, end: 20030804
  3. AMLODIN (AMLODIPINE BESILATE) (AMLODIPINE) [Suspect]
     Indication: HYPERTENSION
     Dosage: 5 MG (DAILY) ORAL
     Route: 048
     Dates: start: 20011220, end: 20030804
  4. ACETYLASALICYLIC ACID [Concomitant]
  5. FUROSEMIDE [Concomitant]

REACTIONS (3)
  - BLOOD LACTATE DEHYDROGENASE INCREASED [None]
  - INTERSTITIAL LUNG DISEASE [None]
  - LABORATORY TEST ABNORMAL [None]
